FAERS Safety Report 16037846 (Version 1)
Quarter: 2019Q1

REPORT INFORMATION
  Report Type: Spontaneous
  Country: IE (occurrence: IE)
  Receive Date: 20190305
  Receipt Date: 20190305
  Transmission Date: 20190418
  Serious: Yes (Other)
  Sender: FDA-Public Use
  Company Number: IE-MYLANLABS-2019M1019267

PATIENT
  Age: 6 Year
  Sex: Female

DRUGS (3)
  1. VENTOLIN [Concomitant]
     Active Substance: ALBUTEROL SULFATE
     Dosage: UNK
  2. MONTELUKAST [Suspect]
     Active Substance: MONTELUKAST SODIUM
     Indication: ASTHMA
     Dosage: 5 MILLIGRAM, QD
     Route: 048
     Dates: start: 201710, end: 201804
  3. BECOTIDE [Concomitant]
     Active Substance: BECLOMETHASONE DIPROPIONATE
     Dosage: UNK

REACTIONS (4)
  - Depression [Not Recovered/Not Resolved]
  - Anxiety [Not Recovered/Not Resolved]
  - Sleep terror [Not Recovered/Not Resolved]
  - Somnambulism [Not Recovered/Not Resolved]
